FAERS Safety Report 7306870-1 (Version None)
Quarter: 2011Q1

REPORT INFORMATION
  Report Type: 
  Country: None (occurrence: None)
  Receive Date: 20110223
  Receipt Date: 20110211
  Transmission Date: 20110831
  Serious: Yes (Other)
  Sender: FDA-Public Use
  Company Number: US-BIOGENIDEC-2011BI005580

PATIENT
  Age: 43 Year
  Sex: Female
  Weight: 72 kg

DRUGS (2)
  1. TYSABRI [Suspect]
     Indication: MULTIPLE SCLEROSIS
     Route: 042
     Dates: start: 20090416
  2. TYSABRI [Suspect]
     Route: 042
     Dates: start: 20070101, end: 20070101

REACTIONS (4)
  - ASTHENIA [None]
  - HEPATITIS [None]
  - BALANCE DISORDER [None]
  - FALL [None]
